FAERS Safety Report 6379443-5 (Version None)
Quarter: 2009Q3

REPORT INFORMATION
  Report Type: 
  Country: None (occurrence: None)
  Receive Date: 20090928
  Receipt Date: 20090922
  Transmission Date: 20100115
  Serious: Yes (Death)
  Sender: FDA-Public Use
  Company Number: A0809117A

PATIENT
  Sex: Male

DRUGS (1)
  1. SERETIDE [Suspect]
     Dosage: 2PUFF TWICE PER DAY
     Route: 055
     Dates: start: 19990101, end: 20090820

REACTIONS (1)
  - ACUTE RESPIRATORY FAILURE [None]
